FAERS Safety Report 5857299-4 (Version None)
Quarter: 2008Q3

REPORT INFORMATION
  Report Type: 
  Country: None (occurrence: None)
  Receive Date: 20080822
  Receipt Date: 20080818
  Transmission Date: 20090109
  Serious: Yes (Death, Life-Threatening, Hospitalization)
  Sender: FDA-Public Use
  Company Number: CLOF-10615

PATIENT
  Age: 39 Year
  Sex: Male

DRUGS (26)
  1. CLOFARABINE (CLOFARABINE) SOLUTION FOR INFUSION [Suspect]
     Indication: BONE MARROW CONDITIONING REGIMEN
     Dosage: 20 MG/M2, QD, INTRAVENOUS;20 MG/M2, QD, INTRAVENOUS
     Route: 042
     Dates: start: 20070624, end: 20070626
  2. CLOFARABINE (CLOFARABINE) SOLUTION FOR INFUSION [Suspect]
     Indication: BONE MARROW CONDITIONING REGIMEN
     Dosage: 20 MG/M2, QD, INTRAVENOUS;20 MG/M2, QD, INTRAVENOUS
     Route: 042
     Dates: start: 20070627, end: 20070628
  3. CLOFARABINE (CLOFARABINE) SOLUTION FOR INFUSION [Suspect]
  4. MELPHALAN (MELPHALAN) [Suspect]
     Indication: BONE MARROW CONDITIONING REGIMEN
     Dosage: 70 MG/M2, QD, INTRAVENOUS
     Route: 042
     Dates: start: 20070630, end: 20070701
  5. THIOTEPA [Suspect]
     Indication: BONE MARROW CONDITIONING REGIMEN
     Dosage: 10 MG/KG, ONCE, INTRAVENOUS
     Route: 042
     Dates: start: 20070629, end: 20070629
  6. VANCOMYCIN [Concomitant]
  7. MYCOPHENOLATE MOFETIL [Concomitant]
  8. IPRATROPIUM/ALBUTEROL (SALBUTAMOL, IPRATROPIUM) [Concomitant]
  9. LEVOFLOXACIN [Concomitant]
  10. FILGRASTIM (FILGRASTIM) [Concomitant]
  11. MUPIROCIN [Concomitant]
  12. DAPTOMYCIN (DAPTOMYCIN) [Concomitant]
  13. SIROLIMUS (SIROLIMUS) [Concomitant]
  14. MEROPENEM (MEROPENEM) [Concomitant]
  15. PANTOPRAZOLE SODIUM [Concomitant]
  16. MICAFUNGIN SODIUM (MICAFUNGIN SODIUM) [Concomitant]
  17. FOLIC ACID [Concomitant]
  18. METRONIDAZOLE [Concomitant]
  19. HYDROCORTISONE-NEOMYCIN-POLYMYXIN B (HYDROCORTISONE, NEOMYCIN, POLYMYX [Concomitant]
  20. PHYTONADIONE [Concomitant]
  21. METHYLPREDNISOLONE [Concomitant]
  22. LEUKINE [Concomitant]
  23. ALBUMIN (HUMAN) [Concomitant]
  24. CYANOCOBALAMIN [Concomitant]
  25. ACYCLOVIR [Concomitant]
  26. SOLIA [Concomitant]

REACTIONS (20)
  - ACUTE GRAFT VERSUS HOST DISEASE [None]
  - CATHETER SEPSIS [None]
  - CONFUSIONAL STATE [None]
  - DIARRHOEA [None]
  - ENTEROCOCCAL INFECTION [None]
  - GENERAL PHYSICAL HEALTH DETERIORATION [None]
  - HAEMATEMESIS [None]
  - HAEMOPTYSIS [None]
  - HALLUCINATION [None]
  - HYPERBILIRUBINAEMIA [None]
  - HYPOTENSION [None]
  - LOWER GASTROINTESTINAL HAEMORRHAGE [None]
  - MENTAL STATUS CHANGES [None]
  - MUCOSAL INFLAMMATION [None]
  - NEUTROPENIA [None]
  - RENAL FAILURE ACUTE [None]
  - SEPSIS [None]
  - SPLENOMEGALY [None]
  - STAPHYLOCOCCAL INFECTION [None]
  - VENOOCCLUSIVE LIVER DISEASE [None]
